FAERS Safety Report 8713472 (Version 2)
Quarter: 2012Q4

REPORT INFORMATION
  Report Type: Report from Study
  Country: MX (occurrence: MX)
  Receive Date: 20120808
  Receipt Date: 20121012
  Transmission Date: 20130627
  Serious: Yes (Hospitalization)
  Sender: FDA-Public Use
  Company Number: MX-BRISTOL-MYERS SQUIBB COMPANY-16837437

PATIENT
  Age: 67 Year
  Sex: Male
  Weight: 52 kg

DRUGS (6)
  1. ERBITUX [Suspect]
     Indication: HEAD AND NECK CANCER
     Dosage: 250mg/m2
Last dose on 17Jul2012, on day 1 of cycle
     Route: 042
     Dates: start: 20120612
  2. CARBOPLATIN [Suspect]
     Indication: HEAD AND NECK CANCER
     Dosage: 1DF: AUC 5 on day 1, Last dose on 17Jul2012
     Route: 042
     Dates: start: 20120612
  3. 5-FLUOROURACIL [Suspect]
     Indication: HEAD AND NECK CANCER
     Dosage: Last dose on 20Jul12, Day1-4
     Route: 042
     Dates: start: 20120612
  4. METFORMIN [Concomitant]
     Indication: TYPE 2 DIABETES MELLITUS
  5. GLIBENCLAMIDE [Concomitant]
     Indication: TYPE 2 DIABETES MELLITUS
  6. ENALAPRIL [Concomitant]
     Indication: HYPERTENSION

REACTIONS (2)
  - Dysphagia [Recovered/Resolved]
  - Mucosal inflammation [Recovered/Resolved]
